FAERS Safety Report 20091076 (Version 2)
Quarter: 2022Q2

REPORT INFORMATION
  Report Type: Spontaneous
  Country: US (occurrence: US)
  Receive Date: 20211119
  Receipt Date: 20220610
  Transmission Date: 20220721
  Serious: No
  Sender: FDA-Public Use
  Company Number: US-PFIZER INC-202101548690

PATIENT
  Age: 66 Year
  Sex: Female

DRUGS (1)
  1. IBRANCE [Suspect]
     Active Substance: PALBOCICLIB
     Dosage: 125 MG
     Dates: start: 20190411, end: 20220223

REACTIONS (5)
  - Weight increased [Unknown]
  - Contusion [Unknown]
  - Capillary fragility [Unknown]
  - Dyspnoea [Unknown]
  - Neoplasm progression [Unknown]
